FAERS Safety Report 4838027-8 (Version None)
Quarter: 2005Q4

REPORT INFORMATION
  Report Type: 
  Country: None (occurrence: None)
  Receive Date: 20051123
  Receipt Date: 20051123
  Transmission Date: 20060501
  Serious: Yes (Hospitalization)
  Sender: FDA-Public Use
  Company Number: None

PATIENT
  Age: 78 Year
  Sex: Male

DRUGS (7)
  1. FUROSEMIDE [Suspect]
     Indication: HYPERTENSION
     Dosage: 20 MG PO BID
     Route: 048
  2. WARFARIN [Concomitant]
  3. DIGOXIN [Concomitant]
  4. DILTIAZEM HCL [Concomitant]
  5. TERAZOSIN [Concomitant]
  6. LORATADINE [Concomitant]
  7. FESO4 [Concomitant]

REACTIONS (1)
  - SYNCOPE [None]
